FAERS Safety Report 17085067 (Version 3)
Quarter: 2019Q4

REPORT INFORMATION
  Report Type: Spontaneous
  Country: US (occurrence: US)
  Receive Date: 20191127
  Receipt Date: 20191212
  Transmission Date: 20200122
  Serious: Yes (Other)
  Sender: FDA-Public Use
  Company Number: US-BEH-2019109866

PATIENT
  Age: 58 Year
  Sex: Female

DRUGS (5)
  1. BENADRYL [Concomitant]
     Active Substance: DIPHENHYDRAMINE HYDROCHLORIDE
     Indication: PREMEDICATION
  2. HIZENTRA [Suspect]
     Active Substance: HUMAN IMMUNOGLOBULIN G
     Indication: PRIMARY IMMUNODEFICIENCY SYNDROME
     Dosage: UNK, QW
     Route: 065
     Dates: start: 2016
  3. HIZENTRA [Suspect]
     Active Substance: HUMAN IMMUNOGLOBULIN G
     Dosage: 10 GRAM, QW
     Route: 058
     Dates: start: 201909
  4. BENADRYL [Concomitant]
     Active Substance: DIPHENHYDRAMINE HYDROCHLORIDE
     Indication: PREMEDICATION
  5. HIZENTRA [Suspect]
     Active Substance: HUMAN IMMUNOGLOBULIN G
     Dosage: 10 GRAM, TOT
     Route: 058
     Dates: start: 20191121, end: 20191121

REACTIONS (18)
  - Flushing [Recovering/Resolving]
  - Feeling abnormal [Recovering/Resolving]
  - Infusion site rash [Recovering/Resolving]
  - Sinusitis [Not Recovered/Not Resolved]
  - Infusion site induration [Recovering/Resolving]
  - Adverse drug reaction [Unknown]
  - Social problem [Not Recovered/Not Resolved]
  - Anaphylactic reaction [Recovering/Resolving]
  - Infusion site swelling [Recovering/Resolving]
  - Throat tightness [Recovering/Resolving]
  - Urinary tract infection [Not Recovered/Not Resolved]
  - Dysarthria [Recovering/Resolving]
  - Infusion site discolouration [Recovering/Resolving]
  - Infusion site pain [Recovering/Resolving]
  - Infusion site pruritus [Recovering/Resolving]
  - Dyspnoea [Recovering/Resolving]
  - Therapy cessation [Not Recovered/Not Resolved]
  - Speech disorder [Recovering/Resolving]

NARRATIVE: CASE EVENT DATE: 20191121
